FAERS Safety Report 18333148 (Version 2)
Quarter: 2020Q4

REPORT INFORMATION
  Report Type: Report from Study
  Country: None (occurrence: US)
  Receive Date: 20200930
  Receipt Date: 20201028
  Transmission Date: 20210113
  Serious: Yes (Other)
  Sender: FDA-Public Use
  Company Number: US-ABBVIE-20K-163-3506749-00

PATIENT
  Age: 64 Year
  Sex: Female

DRUGS (2)
  1. HUMIRA [Suspect]
     Active Substance: ADALIMUMAB
     Route: 058
     Dates: start: 2020
  2. HUMIRA [Suspect]
     Active Substance: ADALIMUMAB
     Indication: RHEUMATOID ARTHRITIS
     Route: 058
     Dates: start: 20200706, end: 2020

REACTIONS (14)
  - Joint swelling [Not Recovered/Not Resolved]
  - Fatigue [Recovering/Resolving]
  - Loss of personal independence in daily activities [Recovering/Resolving]
  - Gait disturbance [Recovering/Resolving]
  - Anxiety [Recovered/Resolved]
  - Sinusitis [Unknown]
  - Synovial cyst [Unknown]
  - Pain [Not Recovered/Not Resolved]
  - Bone pain [Unknown]
  - Arthralgia [Not Recovered/Not Resolved]
  - Joint effusion [Unknown]
  - Tendonitis [Recovering/Resolving]
  - Joint stiffness [Not Recovered/Not Resolved]
  - Depressed mood [Recovered/Resolved]

NARRATIVE: CASE EVENT DATE: 2020
